FAERS Safety Report 24283492 (Version 3)
Quarter: 2025Q3

REPORT INFORMATION
  Report Type: Report from Study
  Country: US (occurrence: US)
  Receive Date: 20240904
  Receipt Date: 20250827
  Transmission Date: 20251020
  Serious: No
  Sender: SUNOVION
  Company Number: US-SUMITOMO PHARMA SWITZERLAND GMBH-2024SPA001214

PATIENT
  Age: 76 Year
  Sex: Male

DRUGS (14)
  1. ORGOVYX [Suspect]
     Active Substance: RELUGOLIX
     Indication: Prostate cancer
     Dosage: 360 MG, SINGLE
     Route: 048
     Dates: start: 20230518, end: 20230518
  2. ORGOVYX [Suspect]
     Active Substance: RELUGOLIX
     Dosage: 120 MG, QD
     Route: 048
     Dates: start: 20230519
  3. Allergy Relief [Concomitant]
  4. ABIRATERONE ACETATE [Concomitant]
     Active Substance: ABIRATERONE ACETATE
  5. CALCIUM\VITAMIN D [Concomitant]
     Active Substance: CALCIUM\VITAMIN D
  6. CRESTOR [Concomitant]
     Active Substance: ROSUVASTATIN CALCIUM
  7. MAGNESIUM OXIDE [Concomitant]
     Active Substance: MAGNESIUM OXIDE
  8. NUBEQA [Concomitant]
     Active Substance: DAROLUTAMIDE
  9. VITAMINS [Concomitant]
     Active Substance: VITAMINS
  10. EZETIMIBE [Concomitant]
     Active Substance: EZETIMIBE
  11. PREDNISONE [Concomitant]
     Active Substance: PREDNISONE
  12. SOLIFENACIN SUCCINATE [Concomitant]
     Active Substance: SOLIFENACIN SUCCINATE
  13. VASCEPA [Concomitant]
     Active Substance: ICOSAPENT ETHYL
  14. VITAMIN B COMPLEX [Concomitant]
     Active Substance: CYANOCOBALAMIN\DEXPANTHENOL\NIACINAMIDE\PYRIDOXINE HYDROCHLORIDE\RIBOFLAVIN 5^-PHOSPHATE SODIUM\THIA

REACTIONS (4)
  - Bladder disorder [Unknown]
  - Weight increased [Unknown]
  - Hot flush [Unknown]
  - Accidental overdose [Recovered/Resolved]
